FAERS Safety Report 21590320 (Version 1)
Quarter: 2022Q4

REPORT INFORMATION
  Report Type: Spontaneous
  Country: US (occurrence: None)
  Receive Date: 20221111
  Receipt Date: 20221111
  Transmission Date: 20230113
  Serious: No
  Sender: FDA-Public Use
  Company Number: None

PATIENT
  Age: 72 Year
  Sex: Male
  Weight: 89.1 kg

DRUGS (9)
  1. DUPIXENT [Suspect]
     Active Substance: DUPILUMAB
     Indication: Dermatitis
     Dosage: OTHER QUANTITY : 2 INJECTION(S);?OTHER FREQUENCY : INITIAL INJECTION;?
     Route: 058
     Dates: start: 20221110, end: 20221110
  2. XARELTO [Concomitant]
     Active Substance: RIVAROXABAN
  3. PROTONIX [Concomitant]
     Active Substance: PANTOPRAZOLE SODIUM
  4. ATORVASTATIN [Concomitant]
     Active Substance: ATORVASTATIN
  5. VITAMIN B12 [Concomitant]
     Active Substance: CYANOCOBALAMIN
  6. B-6 [Concomitant]
  7. CHOLECALCIFEROL [Concomitant]
     Active Substance: CHOLECALCIFEROL
  8. FOLIC ACID [Concomitant]
     Active Substance: FOLIC ACID
  9. Furosemide/potassium (as needed if right foot swells) [Concomitant]

REACTIONS (3)
  - Dizziness [None]
  - Respiration abnormal [None]
  - Pruritus [None]

NARRATIVE: CASE EVENT DATE: 20221110
